FAERS Safety Report 22130525 (Version 2)
Quarter: 2023Q1

REPORT INFORMATION
  Report Type: Report from Study
  Country: US (occurrence: US)
  Receive Date: 20230323
  Receipt Date: 20230324
  Transmission Date: 20230418
  Serious: Yes (Hospitalization, Other)
  Sender: FDA-Public Use
  Company Number: US-009507513-2211USA001278

PATIENT
  Age: 77 Year
  Sex: Female
  Weight: 47.166 kg

DRUGS (2)
  1. PEMBROLIZUMAB [Suspect]
     Active Substance: PEMBROLIZUMAB
     Indication: Breast cancer metastatic
     Dosage: 200 MILLIGRAM, Q3W
     Route: 042
     Dates: start: 20221026, end: 20221214
  2. SACITUZUMAB GOVITECAN [Suspect]
     Active Substance: SACITUZUMAB GOVITECAN
     Indication: Breast cancer metastatic
     Dosage: 546 MILLIGRAM, DAY 1, DAY 8, 1 WEEK OFF
     Route: 042
     Dates: start: 20221026, end: 20221102

REACTIONS (10)
  - Dilatation intrahepatic duct acquired [Unknown]
  - Bile duct stenosis [Unknown]
  - Hepatic enzyme abnormal [Unknown]
  - Urinary tract infection [Unknown]
  - Pancreatitis [Unknown]
  - Drug-induced liver injury [Unknown]
  - Drug-induced liver injury [Unknown]
  - Blood alkaline phosphatase abnormal [Unknown]
  - Aspartate aminotransferase abnormal [Unknown]
  - Abdominal pain lower [Unknown]

NARRATIVE: CASE EVENT DATE: 20221102
